FAERS Safety Report 15891037 (Version 1)
Quarter: 2019Q1

REPORT INFORMATION
  Report Type: Spontaneous
  Country: US (occurrence: US)
  Receive Date: 20190130
  Receipt Date: 20190130
  Transmission Date: 20190417
  Serious: No
  Sender: FDA-Public Use
  Company Number: US-BAYER-2019-021549

PATIENT
  Sex: Female

DRUGS (14)
  1. HYDROCHLOROTH [Concomitant]
     Active Substance: HYDROCHLOROTHIAZIDE
  2. IRON [Concomitant]
     Active Substance: IRON
  3. OMEPRAZOLE. [Concomitant]
     Active Substance: OMEPRAZOLE
  4. BETASERON [Suspect]
     Active Substance: INTERFERON BETA-1B
     Indication: MULTIPLE SCLEROSIS
     Dosage: UNK
  5. METOPROLOL [METOPROLOL SUCCINATE] [Concomitant]
  6. OXYBUTININ ACCORD [Concomitant]
  7. SERTRALINE HYDROCHLORIDE. [Concomitant]
     Active Substance: SERTRALINE HYDROCHLORIDE
  8. AMLODIPINE BESILATE [Concomitant]
     Active Substance: AMLODIPINE BESYLATE
  9. BACLOFEN. [Concomitant]
     Active Substance: BACLOFEN
  10. METHOCARBAMOL. [Concomitant]
     Active Substance: METHOCARBAMOL
  11. GABAPENTIN. [Concomitant]
     Active Substance: GABAPENTIN
  12. LASIX [Concomitant]
     Active Substance: FUROSEMIDE
  13. LOSARTANKALIUM [Concomitant]
     Active Substance: LOSARTAN
  14. POTASSIUM CHLORIDE;SODIUM CHLORIDE [Concomitant]

REACTIONS (1)
  - Malaise [Not Recovered/Not Resolved]
